FAERS Safety Report 23322324 (Version 1)
Quarter: 2023Q4

REPORT INFORMATION
  Report Type: Spontaneous
  Country: BR (occurrence: BR)
  Receive Date: 20231220
  Receipt Date: 20231220
  Transmission Date: 20240110
  Serious: Yes (Other)
  Sender: FDA-Public Use
  Company Number: BR-TAKEDA-2023TUS121662

PATIENT
  Sex: Female

DRUGS (7)
  1. LISDEXAMFETAMINE DIMESYLATE [Suspect]
     Active Substance: LISDEXAMFETAMINE DIMESYLATE
     Indication: Product used for unknown indication
     Dosage: UNK
     Route: 065
  2. DEXILANT [Suspect]
     Active Substance: DEXLANSOPRAZOLE
     Indication: Abdominal pain upper
     Dosage: 1 DOSAGE FORM, QD
     Route: 065
     Dates: start: 20231207
  3. DEXILANT [Suspect]
     Active Substance: DEXLANSOPRAZOLE
     Indication: Gastritis
  4. DEXILANT [Suspect]
     Active Substance: DEXLANSOPRAZOLE
     Indication: Oesophageal pain
  5. BETAHISTINE [Concomitant]
     Active Substance: BETAHISTINE
     Indication: Labyrinthitis
     Dosage: UNK
     Route: 065
  6. Amome [Concomitant]
     Indication: Asthma
     Dosage: UNK
     Route: 065
  7. ALBUTEROL [Concomitant]
     Active Substance: ALBUTEROL
     Indication: Asthma
     Dosage: UNK
     Route: 065

REACTIONS (9)
  - Intestinal obstruction [Unknown]
  - Oesophageal pain [Unknown]
  - Hiccups [Unknown]
  - Flatulence [Unknown]
  - Vision blurred [Unknown]
  - Insomnia [Unknown]
  - Abdominal pain [Unknown]
  - Prescription drug used without a prescription [Unknown]
  - Off label use [Unknown]
